FAERS Safety Report 15179981 (Version 1)
Quarter: 2018Q3

REPORT INFORMATION
  Report Type: Spontaneous
  Country: US (occurrence: US)
  Receive Date: 20180723
  Receipt Date: 20180723
  Transmission Date: 20181010
  Serious: No
  Sender: FDA-Public Use
  Company Number: US-PFIZER INC-2018289281

PATIENT
  Age: 56 Year
  Sex: Male
  Weight: 95.25 kg

DRUGS (1)
  1. TESTOSTERONE CIPIONATE [Suspect]
     Active Substance: TESTOSTERONE
     Indication: BLOOD TESTOSTERONE DECREASED
     Dosage: 1 ML, PER WEEK
     Dates: end: 20180712

REACTIONS (4)
  - Presyncope [Not Recovered/Not Resolved]
  - Hot flush [Not Recovered/Not Resolved]
  - Paraesthesia [Not Recovered/Not Resolved]
  - Hyperhidrosis [Not Recovered/Not Resolved]

NARRATIVE: CASE EVENT DATE: 201807
